FAERS Safety Report 13844324 (Version 1)
Quarter: 2017Q3

REPORT INFORMATION
  Report Type: Report from Study
  Country: BE (occurrence: BE)
  Receive Date: 20170808
  Receipt Date: 20170808
  Transmission Date: 20171127
  Serious: Yes (Hospitalization)
  Sender: FDA-Public Use
  Company Number: BE-JNJFOC-20170805221

PATIENT
  Sex: Male
  Weight: 74 kg

DRUGS (7)
  1. XARELTO [Suspect]
     Active Substance: RIVAROXABAN
     Indication: DEEP VEIN THROMBOSIS
     Route: 048
     Dates: start: 20161221, end: 20170418
  2. CIPROFLOXACIN. [Concomitant]
     Active Substance: CIPROFLOXACIN
     Route: 065
     Dates: start: 201701, end: 20170130
  3. PREDNISON [Concomitant]
     Active Substance: PREDNISONE
     Route: 065
     Dates: start: 2002
  4. XARELTO [Suspect]
     Active Substance: RIVAROXABAN
     Indication: CATHETERISATION CARDIAC
     Route: 048
     Dates: start: 20161221, end: 20170418
  5. XARELTO [Suspect]
     Active Substance: RIVAROXABAN
     Indication: EMBOLISM VENOUS
     Route: 048
     Dates: start: 20161221, end: 20170418
  6. AMOXICILLIN AND CLAVULANATE POTASSIUM [Concomitant]
     Active Substance: AMOXICILLIN\CLAVULANATE POTASSIUM
     Route: 065
     Dates: start: 201701, end: 201701
  7. FRAXODI [Concomitant]
     Active Substance: NADROPARIN CALCIUM
     Route: 065
     Dates: start: 20161122, end: 20161220

REACTIONS (1)
  - Oesophageal spasm [Recovered/Resolved]

NARRATIVE: CASE EVENT DATE: 201706
